FAERS Safety Report 14304471 (Version 1)
Quarter: 2017Q4

REPORT INFORMATION
  Report Type: Report from Study
  Country: JP (occurrence: JP)
  Receive Date: 20171219
  Receipt Date: 20171219
  Transmission Date: 20180321
  Serious: Yes (Hospitalization, Other)
  Sender: FDA-Public Use
  Company Number: JP-OTSUKA-007897

PATIENT
  Age: 61 Year
  Sex: Female

DRUGS (26)
  1. RISPERIDONE. [Concomitant]
     Active Substance: RISPERIDONE
     Dosage: 12 MG, QD
     Route: 048
     Dates: start: 20090831
  2. ARIPIPRAZOLE. [Suspect]
     Active Substance: ARIPIPRAZOLE
     Dosage: 24 MG, QD
     Route: 048
     Dates: start: 20090812, end: 20090821
  3. IMPROMEN [Concomitant]
     Active Substance: BROMPERIDOL
     Indication: SCHIZOPHRENIA
     Dosage: 6 MG, QD
     Route: 048
     Dates: start: 20060812, end: 20090916
  4. IMPROMEN [Concomitant]
     Active Substance: BROMPERIDOL
     Dosage: 21 MG, QD
     Route: 048
     Dates: start: 20091005, end: 20091006
  5. IMPROMEN [Concomitant]
     Active Substance: BROMPERIDOL
     Dosage: 30 MG, QD
     Route: 048
     Dates: start: 20091014, end: 20091222
  6. BARNETIL [Concomitant]
     Active Substance: SULTOPRIDE HYDROCHLORIDE
     Dosage: 900 MG, QD
     Route: 048
     Dates: start: 20100407
  7. RISPERIDONE. [Concomitant]
     Active Substance: RISPERIDONE
     Dosage: UNK
     Dates: start: 20060707
  8. RISPERIDONE. [Concomitant]
     Active Substance: RISPERIDONE
     Dosage: 8 MG, QD
     Route: 048
     Dates: start: 20090828, end: 20090830
  9. IMPROMEN [Concomitant]
     Active Substance: BROMPERIDOL
     Dosage: 15 MG, QD
     Route: 048
     Dates: start: 20090924, end: 20091004
  10. LINTON [Concomitant]
     Active Substance: HALOPERIDOL
     Indication: SCHIZOPHRENIA
     Dosage: 6 MG, QD
     Route: 048
     Dates: start: 20091019, end: 20091027
  11. ARIPIPRAZOLE. [Suspect]
     Active Substance: ARIPIPRAZOLE
     Dosage: 30 MG, QD
     Route: 048
     Dates: start: 20090822
  12. IMPROMEN [Concomitant]
     Active Substance: BROMPERIDOL
     Dosage: 27 MG, QD
     Route: 048
     Dates: start: 20091007, end: 20091013
  13. IMPROMEN [Concomitant]
     Active Substance: BROMPERIDOL
     Dosage: 24 MG, QD
     Route: 048
     Dates: start: 20091223, end: 20100105
  14. BARNETIL [Concomitant]
     Active Substance: SULTOPRIDE HYDROCHLORIDE
     Indication: SCHIZOPHRENIA
     Dosage: 600 MG, QD
     Route: 048
     Dates: start: 20100317, end: 20100406
  15. LINTON [Concomitant]
     Active Substance: HALOPERIDOL
     Dosage: 18 MG, QD
     Route: 048
     Dates: start: 20091111, end: 20091208
  16. ARIPIPRAZOLE. [Suspect]
     Active Substance: ARIPIPRAZOLE
     Indication: SCHIZOPHRENIA
     Dosage: 6 MG, QD
     Route: 048
     Dates: start: 20090410, end: 20090702
  17. ARIPIPRAZOLE. [Suspect]
     Active Substance: ARIPIPRAZOLE
     Dosage: 12 MG, QD
     Route: 048
     Dates: start: 20090703, end: 20090811
  18. GOODMIN [Concomitant]
     Active Substance: BROTIZOLAM
     Indication: SCHIZOPHRENIA
     Dosage: 0.25 MG, QD
     Route: 048
  19. RISPERIDONE. [Concomitant]
     Active Substance: RISPERIDONE
     Indication: SCHIZOPHRENIA
     Dosage: 4 MG, QD
     Route: 048
     Dates: start: 20060707, end: 20090827
  20. LINTON [Concomitant]
     Active Substance: HALOPERIDOL
     Dosage: 36 MG, QD
     Route: 048
     Dates: start: 20100106
  21. LINTON [Concomitant]
     Active Substance: HALOPERIDOL
     Dosage: 12 MG, QD
     Route: 048
     Dates: start: 20091028, end: 20091110
  22. LINTON [Concomitant]
     Active Substance: HALOPERIDOL
     Dosage: 24 MG, QD
     Route: 048
     Dates: start: 20091209, end: 20091222
  23. LINTON [Concomitant]
     Active Substance: HALOPERIDOL
     Dosage: 30 MG, QD
     Route: 048
     Dates: start: 20091223, end: 20100105
  24. ARTANE [Concomitant]
     Active Substance: TRIHEXYPHENIDYL HYDROCHLORIDE
     Indication: PROPHYLAXIS
     Dosage: 4 MG, QD
     Route: 048
  25. IMPROMEN [Concomitant]
     Active Substance: BROMPERIDOL
     Dosage: 9 MG, QD
     Route: 048
     Dates: start: 20090917, end: 20090923
  26. UBRETID [Concomitant]
     Active Substance: DISTIGMINE BROMIDE
     Dosage: 5 MG, QD
     Route: 048
     Dates: start: 20061115

REACTIONS (2)
  - Hypokalaemia [Recovering/Resolving]
  - Schizophrenia [Unknown]

NARRATIVE: CASE EVENT DATE: 20090828
